FAERS Safety Report 21022541 (Version 1)
Quarter: 2022Q2

REPORT INFORMATION
  Report Type: Spontaneous
  Country: US (occurrence: None)
  Receive Date: 20220629
  Receipt Date: 20220629
  Transmission Date: 20220720
  Serious: No
  Sender: FDA-Public Use
  Company Number: None

PATIENT
  Age: 97 Year
  Sex: Female

DRUGS (3)
  1. PREDNISONE [Suspect]
     Active Substance: PREDNISONE
     Dates: start: 20211213
  2. PROCHLORPERAZINE [Suspect]
     Active Substance: PROCHLORPERAZINE
  3. AUGMENTIN [Suspect]
     Active Substance: AMOXICILLIN\CLAVULANATE POTASSIUM

REACTIONS (3)
  - Product dispensing error [None]
  - Product colour issue [None]
  - Wrong product administered [None]

NARRATIVE: CASE EVENT DATE: 20211213
